FAERS Safety Report 8775386 (Version 2)
Quarter: 2012Q4

REPORT INFORMATION
  Report Type: 
  Country: US (occurrence: US)
  Receive Date: 20120910
  Receipt Date: 20120926
  Transmission Date: 20130627
  Serious: Yes (Other)
  Sender: FDA-Public Use
  Company Number: US-PFIZER INC-2012219567

PATIENT
  Age: 82 Year
  Sex: Female
  Weight: 60.77 kg

DRUGS (8)
  1. ADVIL PM [Suspect]
     Indication: HEADACHE
     Dosage: 400 mg (two 200mg caplet), 1x/day
     Route: 048
  2. ADVIL PM [Suspect]
     Indication: INSOMNIA
  3. CENTRUM SILVER [Concomitant]
     Dosage: UNK
  4. NORVASC [Concomitant]
     Indication: BLOOD PRESSURE ABNORMAL
     Dosage: 5 mg, 1x/day
  5. EVISTA [Concomitant]
     Dosage: 60 mg, 1x/day
     Dates: start: 2000
  6. ATENOLOL [Concomitant]
     Indication: BLOOD PRESSURE ABNORMAL
     Dosage: 50 mg, 1x/day
  7. CALCIUM [Concomitant]
     Dosage: UNK
  8. FISH OIL [Concomitant]
     Dosage: UNK

REACTIONS (2)
  - Cardiac disorder [Unknown]
  - Abdominal pain upper [Recovered/Resolved]
